FAERS Safety Report 17262243 (Version 1)
Quarter: 2020Q1

REPORT INFORMATION
  Report Type: Spontaneous
  Country: JP (occurrence: JP)
  Receive Date: 20200113
  Receipt Date: 20200113
  Transmission Date: 20200409
  Serious: Yes (Other)
  Sender: FDA-Public Use
  Company Number: JP-PFIZER INC-2020007872

PATIENT
  Age: 58 Year
  Sex: Female

DRUGS (1)
  1. SULFASALAZINE. [Suspect]
     Active Substance: SULFASALAZINE
     Dosage: UNK

REACTIONS (3)
  - Drug reaction with eosinophilia and systemic symptoms [Unknown]
  - Hepatic function abnormal [Unknown]
  - Human herpesvirus 6 infection [Unknown]
